FAERS Safety Report 4961671-4 (Version None)
Quarter: 2006Q2

REPORT INFORMATION
  Report Type: 
  Country: None (occurrence: None)
  Receive Date: 20060404
  Receipt Date: 20060323
  Transmission Date: 20061013
  Serious: Yes (Other)
  Sender: FDA-Public Use
  Company Number: US-JNJFOC-20051104541

PATIENT
  Sex: Female
  Weight: 55.11 kg

DRUGS (6)
  1. REMICADE [Suspect]
     Dosage: MAINTENANCE INFUSIONS FOR APPROXIMATELY 1-1/2 YEARS
     Route: 042
  2. REMICADE [Suspect]
     Indication: CROHN'S DISEASE
     Route: 042
  3. PENTASA [Concomitant]
  4. AZATHIOPRINE [Concomitant]
  5. ENTOCORT [Concomitant]
  6. NSAIDS [Concomitant]

REACTIONS (1)
  - SYSTEMIC LUPUS ERYTHEMATOSUS [None]
